FAERS Safety Report 9262867 (Version 1)
Quarter: 2013Q2

REPORT INFORMATION
  Report Type: Report from Study
  Country: BR (occurrence: BR)
  Receive Date: 20130430
  Receipt Date: 20130430
  Transmission Date: 20140414
  Serious: Yes (Other)
  Sender: FDA-Public Use
  Company Number: PHHY2013BR041908

PATIENT
  Age: 61 Year
  Sex: Female

DRUGS (1)
  1. DIOVAN TRIPLE [Suspect]
     Indication: HYPERTENSION
     Dosage: 2 DF, (160 MG VALS/ 5 MG AMLO/ 12,5 MG HYDRO) PER DAY
     Route: 048
     Dates: start: 20120412

REACTIONS (4)
  - Blood thyroid stimulating hormone increased [Recovering/Resolving]
  - Thyroid disorder [Recovering/Resolving]
  - Local swelling [Not Recovered/Not Resolved]
  - Pain in extremity [Not Recovered/Not Resolved]
